FAERS Safety Report 9685702 (Version 1)
Quarter: 2013Q4

REPORT INFORMATION
  Report Type: Spontaneous
  Country: US (occurrence: US)
  Receive Date: 20131113
  Receipt Date: 20131113
  Transmission Date: 20140711
  Serious: No
  Sender: FDA-Public Use
  Company Number: US-PFIZER INC-2013318103

PATIENT
  Age: 60 Year
  Sex: 0

DRUGS (1)
  1. LEVOXYL [Suspect]
     Dosage: UNK

REACTIONS (3)
  - Product quality issue [Unknown]
  - Hair colour changes [Unknown]
  - Menstruation irregular [Unknown]
